FAERS Safety Report 10344977 (Version 1)
Quarter: 2014Q3

REPORT INFORMATION
  Report Type: Report from Study
  Country: CO (occurrence: None)
  Receive Date: 20140724
  Receipt Date: 20140724
  Transmission Date: 20150326
  Serious: Yes (Death, Other)
  Sender: FDA-Public Use
  Company Number: 2014-20015

PATIENT
  Age: 78 Year
  Sex: Female

DRUGS (1)
  1. EYLEA [Suspect]
     Active Substance: AFLIBERCEPT
     Indication: AGE-RELATED MACULAR DEGENERATION
     Dosage: 20AUG2014
     Dates: start: 20100204, end: 201408

REACTIONS (5)
  - Cough [None]
  - Gastric disorder [None]
  - Haematemesis [None]
  - Influenza [None]
  - Hypoaesthesia [None]

NARRATIVE: CASE EVENT DATE: 20140301
